FAERS Safety Report 8545124 (Version 4)
Quarter: 2012Q4

REPORT INFORMATION
  Report Type: 
  Country: US (occurrence: US)
  Receive Date: 20120503
  Receipt Date: 20121113
  Transmission Date: 20130627
  Serious: Yes (Hospitalization)
  Sender: FDA-Public Use
  Company Number: US-ELI_LILLY_AND_COMPANY-US201204007865

PATIENT
  Age: 49 Year
  Sex: Male
  Weight: 79.73 kg

DRUGS (2)
  1. ZYPREXA RELPREVV [Suspect]
     Indication: SCHIZOPHRENIA
     Dosage: 405 mg, monthly (1/M)
     Route: 030
     Dates: start: 20120221
  2. ZYPREXA RELPREVV [Suspect]
     Dosage: 300 mg, 2/W
     Route: 030
     Dates: start: 20120724

REACTIONS (3)
  - Schizophrenia [Recovering/Resolving]
  - Aggression [Recovering/Resolving]
  - Agitation [Recovering/Resolving]
